FAERS Safety Report 9353323 (Version 1)
Quarter: 2013Q2

REPORT INFORMATION
  Report Type: Spontaneous
  Country: US (occurrence: US)
  Receive Date: 20130618
  Receipt Date: 20130618
  Transmission Date: 20140414
  Serious: Yes (Other)
  Sender: FDA-Public Use
  Company Number: US-BRISTOL-MYERS SQUIBB COMPANY-19009612

PATIENT
  Age: 61 Year
  Sex: Male
  Weight: 120.18 kg

DRUGS (9)
  1. BYDUREON [Suspect]
     Indication: TYPE 2 DIABETES MELLITUS
     Route: 058
     Dates: start: 20130324, end: 20130407
  2. LANTUS [Suspect]
     Indication: TYPE 2 DIABETES MELLITUS
     Route: 048
     Dates: start: 20130324, end: 2013
  3. INSULIN [Suspect]
     Indication: TYPE 2 DIABETES MELLITUS
     Route: 048
     Dates: start: 20130324, end: 2013
  4. LISINOPRIL + HCTZ [Concomitant]
     Dosage: 1DF:20/12.5MG
     Route: 048
  5. PRAVASTATIN SODIUM [Concomitant]
     Route: 048
  6. METFORMIN [Concomitant]
     Route: 048
  7. GLYBURIDE [Concomitant]
     Route: 048
  8. JANUVIA [Concomitant]
     Route: 048
  9. GLIMEPIRIDE [Concomitant]
     Route: 048

REACTIONS (4)
  - Atrial flutter [Recovered/Resolved]
  - Fatigue [Recovered/Resolved]
  - Dyspnoea [Recovered/Resolved]
  - Gait disturbance [Recovered/Resolved]
